FAERS Safety Report 14001804 (Version 1)
Quarter: 2017Q3

REPORT INFORMATION
  Report Type: Spontaneous
  Country: US (occurrence: US)
  Receive Date: 20170922
  Receipt Date: 20170922
  Transmission Date: 20171128
  Serious: Yes (Hospitalization, Congenital Anomaly)
  Sender: FDA-Public Use
  Company Number: US-LUNDBECK-DKLU2037328

PATIENT
  Age: 68 Year
  Sex: Female

DRUGS (1)
  1. NORTHERA [Suspect]
     Active Substance: DROXIDOPA
     Indication: AUTONOMIC NEUROPATHY
     Dosage: SCHEDULE A/B/C OR OTHER AND TITRATING, TITRATION COMPLETE, N/A
     Route: 048
     Dates: start: 201708

REACTIONS (2)
  - Hypertension [Unknown]
  - Malaise [Unknown]

NARRATIVE: CASE EVENT DATE: 20170828
